FAERS Safety Report 15540245 (Version 2)
Quarter: 2021Q2

REPORT INFORMATION
  Report Type: Spontaneous
  Country: FR (occurrence: FR)
  Receive Date: 20181023
  Receipt Date: 20210427
  Transmission Date: 20210716
  Serious: Yes (Death, Congenital Anomaly, Other)
  Sender: FDA-Public Use
  Company Number: FR-SUN PHARMACEUTICAL INDUSTRIES LTD-2018R1-183333

PATIENT

DRUGS (2)
  1. AZITHROMYCINE [Suspect]
     Active Substance: AZITHROMYCIN
     Indication: PROPHYLAXIS AGAINST HIV INFECTION
     Dosage: 1 G, DAILY
     Route: 064
     Dates: start: 20180315
  2. EVIPLERA 200 MG/25 MG/245 MG, COMPRIME PELLICULE [Suspect]
     Active Substance: EMTRICITABINE\RILPIVIRINE\TENOFOVIR DISOPROXIL FUMARATE
     Indication: PROPHYLAXIS AGAINST HIV INFECTION
     Dosage: 1 DF, DAILY
     Route: 064
     Dates: start: 20180313, end: 20180415

REACTIONS (4)
  - Foetal exposure during pregnancy [Fatal]
  - Abortion induced [Fatal]
  - Limb deformity [Fatal]
  - Foetal malformation [Fatal]

NARRATIVE: CASE EVENT DATE: 20180620
